FAERS Safety Report 6696718-0 (Version None)
Quarter: 2010Q2

REPORT INFORMATION
  Report Type: 
  Country: None (occurrence: None)
  Receive Date: 20100421
  Receipt Date: 20100225
  Transmission Date: 20101027
  Serious: No
  Sender: FDA-Public Use
  Company Number: US-000053

PATIENT
  Sex: Male
  Weight: 25.855 kg

DRUGS (5)
  1. KUVAN [Suspect]
     Indication: NEUROTRANSMITTER LEVEL ALTERED
     Dosage: (500 MG QD OTHER)
     Route: 050
     Dates: start: 20090201, end: 20100225
  2. SINEMET [Concomitant]
  3. ARTANE [Concomitant]
  4. L-5HPT [Concomitant]
  5. PEDIASURE [Concomitant]

REACTIONS (5)
  - FLATULENCE [None]
  - HYPERSENSITIVITY [None]
  - HYPOPHAGIA [None]
  - OFF LABEL USE [None]
  - RETCHING [None]
